FAERS Safety Report 6133451-8 (Version None)
Quarter: 2009Q1

REPORT INFORMATION
  Report Type: 
  Country: None (occurrence: None)
  Receive Date: 20090324
  Receipt Date: 20090324
  Transmission Date: 20090719
  Serious: No
  Sender: FDA-Public Use
  Company Number: None

PATIENT
  Age: 80 Year
  Sex: Female
  Weight: 76.2043 kg

DRUGS (2)
  1. ACTONEL [Suspect]
     Indication: OSTEOPOROSIS POSTMENOPAUSAL
     Dosage: 1, TABLET 150 MG ORAL MOUTH
     Route: 048
     Dates: start: 20090315, end: 20090315
  2. ACTONEL [Suspect]

REACTIONS (8)
  - BACK PAIN [None]
  - BONE PAIN [None]
  - HYPOPHAGIA [None]
  - MALAISE [None]
  - NECK PAIN [None]
  - NERVOUSNESS [None]
  - PAIN [None]
  - PAIN IN EXTREMITY [None]
